FAERS Safety Report 23532618 (Version 2)
Quarter: 2024Q1

REPORT INFORMATION
  Report Type: Spontaneous
  Country: CA (occurrence: CA)
  Receive Date: 20240216
  Receipt Date: 20240220
  Transmission Date: 20240410
  Serious: Yes (Hospitalization)
  Sender: FDA-Public Use
  Company Number: CA-PFIZER INC-202400042156

PATIENT
  Age: 45 Year
  Sex: Female

DRUGS (2)
  1. METHOTREXATE SODIUM [Suspect]
     Active Substance: METHOTREXATE SODIUM
     Dosage: 25 MG, WEEKLY
     Route: 058
     Dates: start: 202101
  2. ADALIMUMAB [Concomitant]
     Active Substance: ADALIMUMAB\ISOPROPYL ALCOHOL
     Dosage: 40 MG, EVERY 2 WEEK (1 DF)
     Route: 058

REACTIONS (31)
  - Swelling face [Unknown]
  - Facial pain [Unknown]
  - Dysphagia [Unknown]
  - Oropharyngeal pain [Unknown]
  - Eye pain [Unknown]
  - Dysuria [Unknown]
  - Muscular weakness [Unknown]
  - Hypoaesthesia [Unknown]
  - Facial paresis [Unknown]
  - Drug ineffective [Unknown]
  - Off label use [Unknown]
  - C-reactive protein increased [Recovering/Resolving]
  - Prothrombin level increased [Not Recovered/Not Resolved]
  - Calcium ionised decreased [Unknown]
  - Blood parathyroid hormone increased [Unknown]
  - Vitamin D decreased [Unknown]
  - Herpes simplex [Unknown]
  - Hepatic steatosis [Unknown]
  - Osteoarthritis [Unknown]
  - Blood iron decreased [Unknown]
  - Transferrin saturation decreased [Unknown]
  - Blood potassium decreased [Unknown]
  - Blood immunoglobulin G decreased [Unknown]
  - Blood magnesium decreased [Unknown]
  - Neutrophil count increased [Unknown]
  - Blood phosphorus decreased [Unknown]
  - Haemoglobin increased [Unknown]
  - Red blood cell sedimentation rate increased [Unknown]
  - Haematocrit increased [Unknown]
  - Monocyte count increased [Unknown]
  - Complement factor C3 increased [Unknown]

NARRATIVE: CASE EVENT DATE: 20210505
